FAERS Safety Report 12585359 (Version 1)
Quarter: 2016Q3

REPORT INFORMATION
  Report Type: Spontaneous
  Country: US (occurrence: US)
  Receive Date: 20160724
  Receipt Date: 20160724
  Transmission Date: 20161109
  Serious: Yes (Other)
  Sender: FDA-Public Use
  Company Number: US-JNJFOC-20160711501

PATIENT
  Sex: Female
  Weight: 68.04 kg

DRUGS (5)
  1. TYLENOL [Suspect]
     Active Substance: ACETAMINOPHEN
     Route: 065
  2. BICILLIN L-A [Suspect]
     Active Substance: PENICILLIN G BENZATHINE
     Indication: RHEUMATIC FEVER
     Dosage: 1.2 MILLION UNITS INJECTED ONCE A MONTH IM
     Route: 030
     Dates: start: 201402
  3. ALL OTHER THERAPEUTIC PRODUCTS [Suspect]
     Active Substance: UNSPECIFIED INGREDIENT
     Indication: PRODUCT USED FOR UNKNOWN INDICATION
     Route: 065
  4. TYLENOL [Suspect]
     Active Substance: ACETAMINOPHEN
     Indication: PRODUCT USED FOR UNKNOWN INDICATION
     Route: 065
  5. BICILLIN L-A [Suspect]
     Active Substance: PENICILLIN G BENZATHINE
     Indication: ENCEPHALITIS AUTOIMMUNE
     Dosage: 1.2 MILLION UNITS INJECTED ONCE A MONTH IM
     Route: 030
     Dates: start: 201402

REACTIONS (6)
  - Neurological symptom [Unknown]
  - Stress [Unknown]
  - Seizure [Unknown]
  - Headache [Unknown]
  - Cerebrovascular insufficiency [Unknown]
  - Metabolic disorder [Unknown]
